FAERS Safety Report 16570120 (Version 2)
Quarter: 2019Q4

REPORT INFORMATION
  Report Type: Report from Study
  Country: BR (occurrence: BR)
  Receive Date: 20190715
  Receipt Date: 20191017
  Transmission Date: 20200122
  Serious: Yes (Other)
  Sender: FDA-Public Use
  Company Number: PHHY2019BR163371

PATIENT
  Sex: Male

DRUGS (2)
  1. COSENTYX [Suspect]
     Active Substance: SECUKINUMAB
     Dosage: 300 MG, UNK
     Route: 065
     Dates: start: 20190627
  2. COSENTYX [Suspect]
     Active Substance: SECUKINUMAB
     Indication: PSORIATIC ARTHROPATHY
     Dosage: 300 MG, UNK
     Route: 065
     Dates: start: 201803

REACTIONS (6)
  - Anxiety [Unknown]
  - Discharge [Unknown]
  - Cyst [Unknown]
  - Infection [Unknown]
  - Ingrown hair [Unknown]
  - Furuncle [Unknown]

NARRATIVE: CASE EVENT DATE: 2019
